FAERS Safety Report 16967800 (Version 5)
Quarter: 2020Q1

REPORT INFORMATION
  Report Type: Spontaneous
  Country: PT (occurrence: PT)
  Receive Date: 20191028
  Receipt Date: 20200122
  Transmission Date: 20200409
  Serious: Yes (Hospitalization)
  Sender: FDA-Public Use
  Company Number: PT-JNJFOC-20191024282

PATIENT
  Age: 47 Year
  Sex: Male

DRUGS (13)
  1. ZOTEPINE [Suspect]
     Active Substance: ZOTEPINE
     Indication: INTELLECTUAL DISABILITY
  2. MOTILIUM RAPID [Concomitant]
  3. CARBAMAZEPINE. [Suspect]
     Active Substance: CARBAMAZEPINE
     Indication: INTELLECTUAL DISABILITY
  4. ZOTEPINE [Suspect]
     Active Substance: ZOTEPINE
     Indication: SCHIZOPHRENIA
     Route: 065
  5. CARBAMAZEPINE. [Suspect]
     Active Substance: CARBAMAZEPINE
     Indication: SCHIZOPHRENIA
     Route: 065
  6. BIPERIDEN [Suspect]
     Active Substance: BIPERIDEN
     Indication: SCHIZOPHRENIA
     Route: 065
  7. BIPERIDEN [Suspect]
     Active Substance: BIPERIDEN
     Indication: INTELLECTUAL DISABILITY
  8. HALDOL [Suspect]
     Active Substance: HALOPERIDOL
     Indication: SCHIZOPHRENIA
     Route: 065
  9. CYAMEMAZINE [Suspect]
     Active Substance: CYAMEMAZINE
     Indication: SCHIZOPHRENIA
     Route: 065
  10. CYAMEMAZINE [Suspect]
     Active Substance: CYAMEMAZINE
     Indication: INTELLECTUAL DISABILITY
  11. QUETIAPINE. [Suspect]
     Active Substance: QUETIAPINE
     Indication: SCHIZOPHRENIA
     Route: 065
  12. QUETIAPINE. [Suspect]
     Active Substance: QUETIAPINE
     Indication: INTELLECTUAL DISABILITY
  13. HALDOL [Suspect]
     Active Substance: HALOPERIDOL
     Indication: INTELLECTUAL DISABILITY

REACTIONS (2)
  - Colitis ischaemic [Recovered/Resolved]
  - Shock [Recovered/Resolved]
